FAERS Safety Report 10112309 (Version 1)
Quarter: 2014Q2

REPORT INFORMATION
  Report Type: Spontaneous
  Country: JP (occurrence: JP)
  Receive Date: 20140425
  Receipt Date: 20140425
  Transmission Date: 20141212
  Serious: Yes (Hospitalization)
  Sender: FDA-Public Use
  Company Number: PHHY2014JP048317

PATIENT
  Age: 57 Year
  Sex: Male

DRUGS (3)
  1. DULOXETINE [Suspect]
     Dosage: 30 MG, PER DAY
  2. DULOXETINE [Suspect]
     Dosage: 40 MG, PER DAY
  3. FLUVOXAMINE [Suspect]
     Dosage: 300 MG, PER DAY

REACTIONS (8)
  - Vasospasm [Recovered/Resolved]
  - Coronary artery occlusion [Recovered/Resolved]
  - Serotonin syndrome [Recovered/Resolved]
  - Loss of consciousness [Recovered/Resolved]
  - Tachycardia [Recovered/Resolved]
  - Hyperhidrosis [Recovered/Resolved]
  - Hyperthermia [Recovered/Resolved]
  - Electrocardiogram ST segment elevation [Recovered/Resolved]
